FAERS Safety Report 23764666 (Version 2)
Quarter: 2024Q3

REPORT INFORMATION
  Report Type: Spontaneous
  Country: US (occurrence: US)
  Receive Date: 20240420
  Receipt Date: 20240710
  Transmission Date: 20241016
  Serious: Yes (Hospitalization, Other)
  Sender: SANOFI AVENTIS
  Company Number: US-SA-SAC20240419000425

PATIENT
  Age: 64 Year
  Sex: Male

DRUGS (25)
  1. DUPIXENT [Suspect]
     Active Substance: DUPILUMAB
     Indication: Dermatitis atopic
     Dosage: 600 MG, 1X
     Route: 058
     Dates: start: 202011, end: 202011
  2. DUPIXENT [Suspect]
     Active Substance: DUPILUMAB
     Dosage: 300 MG, QOW
     Route: 058
     Dates: start: 2020, end: 2021
  3. DUPIXENT [Suspect]
     Active Substance: DUPILUMAB
     Dosage: UNK
     Dates: start: 202308, end: 202403
  4. VENTOLIN [Concomitant]
     Active Substance: ALBUTEROL SULFATE
     Dosage: UNK
  5. HYDROCORTISONE [Concomitant]
     Active Substance: HYDROCORTISONE\HYDROCORTISONE ACETATE
     Dosage: UNK
  6. CLOBETASOL [Concomitant]
     Active Substance: CLOBETASOL
     Dosage: UNK
  7. TRIAMCINOLONE [Concomitant]
     Active Substance: TRIAMCINOLONE
     Dosage: UNK
  8. MOMETASONE [Concomitant]
     Active Substance: MOMETASONE
     Dosage: UNK
  9. TACROLIMUS [Concomitant]
     Active Substance: TACROLIMUS
  10. EUCRISA [Concomitant]
     Active Substance: CRISABOROLE
  11. PIMECROLIMUS [Concomitant]
     Active Substance: PIMECROLIMUS
  12. NEXIUM I.V. [Concomitant]
     Active Substance: ESOMEPRAZOLE SODIUM
     Dosage: 40 MG, QD
  13. KEPPRA [Concomitant]
     Active Substance: LEVETIRACETAM
     Dosage: 2 GM BID
  14. LEXAPRO [Concomitant]
     Active Substance: ESCITALOPRAM OXALATE
     Dosage: 20 MG, QD
  15. VIMPAT [Concomitant]
     Active Substance: LACOSAMIDE
     Dosage: 200 MG, BID
  16. VASCEPA [Concomitant]
     Active Substance: ICOSAPENT ETHYL
     Dosage: 2 G, BID
  17. LIPITOR [Concomitant]
     Active Substance: ATORVASTATIN CALCIUM
     Dosage: 40 MG, QD
  18. VALTOCO [Concomitant]
     Active Substance: DIAZEPAM
     Dosage: UNK, QD
  19. MEMANTINE [Concomitant]
     Active Substance: MEMANTINE
     Dosage: 10MG QD
  20. BRILINTA [Concomitant]
     Active Substance: TICAGRELOR
     Dosage: 60MG BID
  21. DONEPEZIL [Concomitant]
     Active Substance: DONEPEZIL\DONEPEZIL HYDROCHLORIDE
     Dosage: 10MG QD
  22. XCOPRI [Concomitant]
     Active Substance: CENOBAMATE
     Dosage: 100MG QD
  23. ASPIRIN [Concomitant]
     Active Substance: ASPIRIN
     Dosage: 81MG QD
  24. INFLUENZA VIRUS VACCINE [Concomitant]
     Active Substance: INFLUENZA VIRUS VACCINE
     Indication: Immunisation
  25. COVID-19 VACCINE [Concomitant]
     Indication: Immunisation

REACTIONS (6)
  - Seizure [Recovered/Resolved]
  - COVID-19 [Unknown]
  - Aggression [Unknown]
  - Nasal congestion [Unknown]
  - Skin atrophy [Unknown]
  - Eczema [Unknown]

NARRATIVE: CASE EVENT DATE: 20210101
